FAERS Safety Report 9848826 (Version 1)
Quarter: 2014Q1

REPORT INFORMATION
  Report Type: Spontaneous
  Country: US (occurrence: None)
  Receive Date: 20140127
  Receipt Date: 20140127
  Transmission Date: 20141002
  Serious: Yes (Other)
  Sender: FDA-Public Use
  Company Number: None

PATIENT
  Age: 52 Year
  Sex: Female

DRUGS (1)
  1. REBIF RIBIDOSE [Suspect]
     Indication: MULTIPLE SCLEROSIS
     Dosage: 1 PEN
     Route: 058
     Dates: start: 20130822, end: 20140124

REACTIONS (3)
  - Urinary retention [None]
  - Amnesia [None]
  - Pain in extremity [None]
